FAERS Safety Report 8723611 (Version 2)
Quarter: 2013Q4

REPORT INFORMATION
  Report Type: Spontaneous
  Country: US (occurrence: US)
  Receive Date: 20120815
  Receipt Date: 20131031
  Transmission Date: 20140711
  Serious: Yes (Hospitalization)
  Sender: FDA-Public Use
  Company Number: US-009507513-1208USA004648

PATIENT
  Sex: Male

DRUGS (18)
  1. CANCIDAS [Suspect]
     Indication: FUNGAL INFECTION
     Dosage: 50 MG, QD
     Route: 042
     Dates: start: 20120717
  2. NORVASC [Concomitant]
  3. CLONIDINE [Concomitant]
  4. MARINOL [Concomitant]
  5. LOVENOX [Concomitant]
  6. ACETAMINOPHEN (+) HYDROCODONE BITARTRATE [Concomitant]
  7. PREVACID [Concomitant]
  8. LEUCOVORIN [Concomitant]
  9. LITHIUM [Concomitant]
  10. ATIVAN [Concomitant]
  11. MERCAPTOPURINE [Concomitant]
  12. METHOTREXATE [Concomitant]
  13. MORPHINE [Concomitant]
  14. ZOFRAN [Concomitant]
  15. POTASSIUM (UNSPECIFIED) [Concomitant]
     Route: 048
  16. SCOPOLAMINE [Concomitant]
  17. BACTRIM [Concomitant]
  18. MELATONIN [Concomitant]

REACTIONS (1)
  - Blood phosphorus increased [Not Recovered/Not Resolved]
